FAERS Safety Report 7021546-6 (Version None)
Quarter: 2010Q3

REPORT INFORMATION
  Report Type: 
  Country: None (occurrence: None)
  Receive Date: 20100928
  Receipt Date: 20100830
  Transmission Date: 20110219
  Serious: Yes (Death, Hospitalization)
  Sender: FDA-Public Use
  Company Number: OTH-PAT-2010003

PATIENT
  Age: 17 Month
  Sex: Male

DRUGS (11)
  1. BETAINE ANHYDROUS, ORAL POWDER, CYSTADANE [Suspect]
     Indication: HOMOCYSTINURIA
     Dosage: SEE IMAGE
     Dates: start: 20090306, end: 20091008
  2. BETAINE ANHYDROUS, ORAL POWDER, CYSTADANE [Suspect]
     Indication: HOMOCYSTINURIA
     Dosage: SEE IMAGE
     Dates: start: 20091009, end: 20100107
  3. BETAINE ANHYDROUS, ORAL POWDER, CYSTADANE [Suspect]
     Indication: HOMOCYSTINURIA
     Dosage: SEE IMAGE
     Dates: start: 20100108, end: 20100510
  4. BETAINE ANHYDROUS, ORAL POWDER, CYSTADANE [Suspect]
     Indication: HOMOCYSTINURIA
     Dosage: SEE IMAGE
     Dates: start: 20100511, end: 20100722
  5. HYDROXOCOBALAMIN [Concomitant]
  6. TOPAMAX [Concomitant]
  7. PYRIDOXINE (KEPPRA) [Concomitant]
  8. LEVETIRACETAM [Concomitant]
  9. LEUCOVORIN CALCIUM [Concomitant]
  10. VIGABATRIN [Concomitant]
  11. LEVECARNITINE [Concomitant]

REACTIONS (4)
  - CRYING [None]
  - DISEASE PROGRESSION [None]
  - PAIN [None]
  - RENAL FAILURE CHRONIC [None]
